FAERS Safety Report 13596731 (Version 1)
Quarter: 2017Q2

REPORT INFORMATION
  Report Type: Spontaneous
  Country: MK (occurrence: None)
  Receive Date: 20170530
  Receipt Date: 20170530
  Transmission Date: 20170830
  Serious: Yes (Other)
  Sender: FDA-Public Use
  Company Number: MK2017K3793LIT

PATIENT
  Age: 61 Year
  Sex: Female

DRUGS (2)
  1. ENALAPRIL GENERIC (ENALAPRIL) UNKNOWN [Suspect]
     Active Substance: ENALAPRIL
     Indication: HYPERTENSION
  2. DICLOFENAC GENERIC (DICLOFENAC) [Suspect]
     Active Substance: DICLOFENAC
     Indication: ARTHRALGIA

REACTIONS (3)
  - Hypersensitivity vasculitis [None]
  - Post inflammatory pigmentation change [None]
  - Onychomadesis [None]
